FAERS Safety Report 20910472 (Version 1)
Quarter: 2022Q2

REPORT INFORMATION
  Report Type: Spontaneous
  Country: GB (occurrence: GB)
  Receive Date: 20220603
  Receipt Date: 20220603
  Transmission Date: 20220721
  Serious: Yes (Other)
  Sender: FDA-Public Use
  Company Number: None

PATIENT
  Sex: Female
  Weight: 121 kg

DRUGS (1)
  1. SERTRALINE [Suspect]
     Active Substance: SERTRALINE HYDROCHLORIDE
     Indication: Anxiety
     Dosage: 50 MG ONCE A DAY EVERY MORNING

REACTIONS (10)
  - Tremor [Recovering/Resolving]
  - Hyperhidrosis [Recovering/Resolving]
  - Muscle twitching [Recovering/Resolving]
  - Restless legs syndrome [Recovering/Resolving]
  - Cardiac flutter [Recovering/Resolving]
  - Exophthalmos [Recovering/Resolving]
  - Mydriasis [Recovering/Resolving]
  - Dry mouth [Recovering/Resolving]
  - Dysuria [Recovering/Resolving]
  - Agitation [Recovering/Resolving]
